FAERS Safety Report 6461114-8 (Version None)
Quarter: 2009Q4

REPORT INFORMATION
  Report Type: 
  Country: None (occurrence: None)
  Receive Date: 20091130
  Receipt Date: 20091127
  Transmission Date: 20100525
  Serious: Yes (Hospitalization)
  Sender: FDA-Public Use
  Company Number: B0609111A

PATIENT
  Sex: Male

DRUGS (11)
  1. LAMICTAL [Suspect]
     Route: 048
     Dates: start: 20090911
  2. LERCANIDIPINE [Concomitant]
     Route: 065
  3. NISIS [Concomitant]
     Route: 065
  4. QUESTRAN [Concomitant]
     Route: 065
  5. CORGARD [Concomitant]
     Route: 065
  6. ZANIDIP [Concomitant]
     Route: 065
  7. TAREG [Concomitant]
     Route: 065
  8. TAHOR [Concomitant]
     Route: 065
  9. RIVOTRIL [Concomitant]
     Route: 065
  10. KEPPRA [Concomitant]
     Route: 065
  11. NEXIUM [Concomitant]
     Route: 065

REACTIONS (3)
  - CONFUSIONAL STATE [None]
  - DELIRIUM [None]
  - MENTAL DISORDER [None]
